FAERS Safety Report 16842943 (Version 1)
Quarter: 2019Q3

REPORT INFORMATION
  Report Type: Spontaneous
  Country: IT (occurrence: IT)
  Receive Date: 20190924
  Receipt Date: 20190924
  Transmission Date: 20191005
  Serious: Yes (Other)
  Sender: FDA-Public Use
  Company Number: IT-AMGEN-ITANI2019153737

PATIENT
  Age: 47 Year
  Sex: Female

DRUGS (3)
  1. TRASTUZUMAB. [Suspect]
     Active Substance: TRASTUZUMAB
     Indication: BREAST CANCER
     Dosage: 378 MILLIGRAM, CYCLICAL
     Route: 042
     Dates: start: 20160211
  2. PERTUZUMAB. [Suspect]
     Active Substance: PERTUZUMAB
     Indication: BREAST CANCER
     Dosage: 420 MILLIGRAM, CYCLICAL
     Route: 042
     Dates: start: 20160211
  3. BISOPROLOL HEMIFUMARATE [Concomitant]
     Active Substance: BISOPROLOL FUMARATE
     Indication: EJECTION FRACTION
     Dosage: 2.5 MILLIGRAM
     Route: 048
     Dates: start: 20180614

REACTIONS (3)
  - Ventricular extrasystoles [Not Recovered/Not Resolved]
  - Tachycardia [Not Recovered/Not Resolved]
  - Off label use [Unknown]

NARRATIVE: CASE EVENT DATE: 20160211
